FAERS Safety Report 4369248-9 (Version None)
Quarter: 2004Q2

REPORT INFORMATION
  Report Type: 
  Country: None (occurrence: None)
  Receive Date: 20040603
  Receipt Date: 20040113
  Transmission Date: 20050107
  Serious: No
  Sender: FDA-Public Use
  Company Number: US-GLAXOSMITHKLINE-A0492895A

PATIENT
  Age: 48 Year
  Sex: Female
  Weight: 63.6 kg

DRUGS (5)
  1. AUGMENTIN [Suspect]
     Indication: SINUSITIS
     Dosage: 2MG TWICE PER DAY
     Route: 048
     Dates: start: 20031212
  2. TOPROL-XL [Concomitant]
  3. NEURONTIN [Concomitant]
  4. CALTRATE [Concomitant]
  5. FEMARA [Concomitant]
     Indication: BREAST CANCER
     Route: 048
     Dates: start: 20031201

REACTIONS (3)
  - BLOOD CHOLESTEROL INCREASED [None]
  - HEPATIC ENZYME INCREASED [None]
  - PALPITATIONS [None]
